FAERS Safety Report 9642455 (Version 2)
Quarter: 2013Q4

REPORT INFORMATION
  Report Type: Spontaneous
  Country: JP (occurrence: JP)
  Receive Date: 20131024
  Receipt Date: 20131030
  Transmission Date: 20140711
  Serious: Yes (Hospitalization)
  Sender: FDA-Public Use
  Company Number: JP-BRISTOL-MYERS SQUIBB COMPANY-19621937

PATIENT
  Age: 63 Year
  Sex: Male

DRUGS (1)
  1. HYDREA CAPS 500 MG [Suspect]
     Indication: THROMBOCYTOSIS
     Route: 048
     Dates: end: 20131010

REACTIONS (1)
  - Dementia [Not Recovered/Not Resolved]
